FAERS Safety Report 9277504 (Version 1)
Quarter: 2013Q2

REPORT INFORMATION
  Report Type: Spontaneous
  Country: US (occurrence: US)
  Receive Date: 20130508
  Receipt Date: 20130508
  Transmission Date: 20140414
  Serious: Yes (Other)
  Sender: FDA-Public Use
  Company Number: US-JNJFOC-20130414441

PATIENT
  Age: 86 Year
  Sex: Male

DRUGS (2)
  1. HALOPERIDOL [Suspect]
     Indication: AGITATION
     Route: 065
  2. LORAZEPAM [Suspect]
     Indication: AGITATION
     Route: 042

REACTIONS (1)
  - Delirium [Unknown]
